FAERS Safety Report 19402149 (Version 1)
Quarter: 2021Q2

REPORT INFORMATION
  Report Type: Report from Study
  Country: None (occurrence: CA)
  Receive Date: 20210611
  Receipt Date: 20210611
  Transmission Date: 20210717
  Serious: Yes (Hospitalization, Other)
  Sender: FDA-Public Use
  Company Number: CA-ABBVIE-21K-028-3940813-00

PATIENT
  Sex: Female

DRUGS (2)
  1. HUMIRA [Suspect]
     Active Substance: ADALIMUMAB
     Indication: PSORIATIC ARTHROPATHY
     Route: 058
     Dates: start: 20091004, end: 202102
  2. HUMIRA [Suspect]
     Active Substance: ADALIMUMAB
     Route: 058
     Dates: start: 202105

REACTIONS (11)
  - Bile duct stone [Unknown]
  - Medical induction of coma [Unknown]
  - Life support [Unknown]
  - Arthralgia [Unknown]
  - Pancreatitis necrotising [Not Recovered/Not Resolved]
  - Pseudocyst [Not Recovered/Not Resolved]
  - Pneumonia [Unknown]
  - Fall [Recovered/Resolved]
  - Pneumothorax [Unknown]
  - Pancreatitis [Unknown]
  - Hypoaesthesia [Unknown]

NARRATIVE: CASE EVENT DATE: 2021
